FAERS Safety Report 6752667-0 (Version None)
Quarter: 2010Q2

REPORT INFORMATION
  Report Type: 
  Country: None (occurrence: None)
  Receive Date: 20100602
  Receipt Date: 20100521
  Transmission Date: 20101027
  Serious: Yes (Death, Hospitalization)
  Sender: FDA-Public Use
  Company Number: JP-AMGEN-QUU406372

PATIENT
  Sex: Female

DRUGS (16)
  1. CINACALCET [Suspect]
     Indication: HYPERPARATHYROIDISM SECONDARY
     Route: 048
     Dates: start: 20100302, end: 20100325
  2. RENAGEL [Suspect]
     Indication: HYPERPHOSPHATAEMIA
     Route: 048
     Dates: start: 20081014, end: 20100325
  3. ALLOPURINOL [Concomitant]
     Route: 048
     Dates: end: 20100325
  4. MYSLEE [Concomitant]
     Route: 048
     Dates: end: 20100325
  5. LANSOPRAZOLE [Concomitant]
     Route: 048
     Dates: end: 20100325
  6. GASMOTIN [Concomitant]
     Route: 048
     Dates: end: 20100325
  7. NU-LOTAN [Concomitant]
     Route: 048
     Dates: end: 20100325
  8. ALFAROL [Concomitant]
     Route: 048
     Dates: end: 20100325
  9. SODIUM PICOSULFATE [Concomitant]
     Route: 048
     Dates: end: 20100325
  10. CALONAL [Concomitant]
     Route: 048
     Dates: end: 20100325
  11. LASIX [Concomitant]
     Route: 048
     Dates: end: 20100325
  12. DEPAS [Concomitant]
     Route: 048
     Dates: end: 20100325
  13. AMOBAN [Concomitant]
     Route: 048
     Dates: end: 20100325
  14. CELESTAMINE TAB [Concomitant]
     Dates: end: 20100325
  15. PURSENNID [Concomitant]
     Route: 048
     Dates: end: 20100325
  16. LOSARTAN POTASSIUM AND HYDROCHLOROTHIAZIDE [Concomitant]
     Route: 048
     Dates: end: 20100325

REACTIONS (1)
  - LARGE INTESTINE PERFORATION [None]
